FAERS Safety Report 8617698-4 (Version None)
Quarter: 2012Q3

REPORT INFORMATION
  Report Type: 
  Country: None (occurrence: None)
  Receive Date: 20120824
  Receipt Date: 20120103
  Transmission Date: 20120928
  Serious: No
  Sender: FDA-Public Use
  Company Number: US-ASTRAZENECA-2012SE00575

PATIENT
  Age: 50 Year
  Sex: Male

DRUGS (2)
  1. NEXIUM [Suspect]
     Route: 048
  2. SYMBICORT [Suspect]
     Route: 055

REACTIONS (5)
  - DECREASED APPETITE [None]
  - DYSGEUSIA [None]
  - WEIGHT DECREASED [None]
  - TOOTH LOSS [None]
  - HYPOSMIA [None]
